FAERS Safety Report 13046443 (Version 1)
Quarter: 2016Q4

REPORT INFORMATION
  Report Type: Spontaneous
  Country: US (occurrence: US)
  Receive Date: 20161220
  Receipt Date: 20161220
  Transmission Date: 20170207
  Serious: No
  Sender: FDA-Public Use
  Company Number: US-PFIZER INC-2016582053

PATIENT
  Sex: Male

DRUGS (1)
  1. QUILLIVANT XR [Suspect]
     Active Substance: METHYLPHENIDATE HYDROCHLORIDE
     Dosage: UNK

REACTIONS (6)
  - Psychomotor hyperactivity [Unknown]
  - Dyskinesia [Unknown]
  - Thinking abnormal [Unknown]
  - Euphoric mood [Unknown]
  - Erythema [Unknown]
  - Logorrhoea [Unknown]
